FAERS Safety Report 5081581-4 (Version None)
Quarter: 2006Q3

REPORT INFORMATION
  Report Type: 
  Country: None (occurrence: None)
  Receive Date: 20060811
  Receipt Date: 20060726
  Transmission Date: 20061208
  Serious: Yes (Other)
  Sender: FDA-Public Use
  Company Number: CTI_0900_2006

PATIENT
  Age: 44 Year
  Sex: Female

DRUGS (11)
  1. ZYFLO [Suspect]
     Indication: ASTHMA
     Dosage: 600 MG QID PO
     Route: 048
     Dates: start: 20051201, end: 20060701
  2. ZOLOFT [Concomitant]
  3. THEOPHYLLINE [Concomitant]
  4. SINGULAIR [Concomitant]
  5. SYNTHROID [Concomitant]
  6. ALLEGRA [Concomitant]
  7. XOPENEX [Concomitant]
  8. SPIRIVA [Concomitant]
  9. ADVAIR DISKUS 100/50 [Concomitant]
  10. XOLAIR [Concomitant]
  11. PREVACID [Concomitant]

REACTIONS (9)
  - ABDOMINAL PAIN [None]
  - ALANINE AMINOTRANSFERASE INCREASED [None]
  - ASPARTATE AMINOTRANSFERASE INCREASED [None]
  - ASTHENIA [None]
  - CHEST PAIN [None]
  - HEPATOMEGALY [None]
  - LETHARGY [None]
  - MALAISE [None]
  - VIRAL INFECTION [None]
